FAERS Safety Report 11627180 (Version 1)
Quarter: 2015Q4

REPORT INFORMATION
  Report Type: Report from Study
  Country: US (occurrence: US)
  Receive Date: 20151013
  Receipt Date: 20151013
  Transmission Date: 20160304
  Serious: No
  Sender: FDA-Public Use
  Company Number: US-AMGEN-USASL2015010324

PATIENT
  Age: 69 Year
  Sex: Male

DRUGS (27)
  1. PROCRIT [Concomitant]
     Active Substance: ERYTHROPOIETIN
     Dosage: 40000 IU, UNK
  2. ZOFRAN [Concomitant]
     Active Substance: ONDANSETRON HYDROCHLORIDE
     Dosage: 32 MG, UNK
     Route: 041
  3. CYCLOPHOSPHAMIDE. [Concomitant]
     Active Substance: CYCLOPHOSPHAMIDE
     Dosage: 250 CC NS (500 MG)
     Route: 041
  4. PROCRIT [Concomitant]
     Active Substance: ERYTHROPOIETIN
     Dosage: 60000 IU, UNK
     Route: 058
  5. ADRIAMYCIN [Concomitant]
     Active Substance: DOXORUBICIN HYDROCHLORIDE
     Dosage: 75 UNK, UNK
     Route: 042
  6. DECADRON [Concomitant]
     Active Substance: DEXAMETHASONE
     Dosage: 20 MG, UNK
     Route: 030
  7. ANZEMET [Concomitant]
     Active Substance: DOLASETRON MESYLATE
     Dosage: 700 MG, UNK
     Route: 042
  8. TYLENOL [Concomitant]
     Active Substance: ACETAMINOPHEN
     Dosage: UNK
  9. GLIPIZIDE. [Concomitant]
     Active Substance: GLIPIZIDE
     Dosage: UNK
  10. NEUPOGEN [Suspect]
     Active Substance: FILGRASTIM
     Indication: NEUTROPENIA
     Dosage: 480 MG, UNK
     Route: 058
  11. RITUXAN [Suspect]
     Active Substance: RITUXIMAB
     Indication: CHRONIC LYMPHOCYTIC LEUKAEMIA
     Dosage: 1000 MG, UNK
     Route: 042
     Dates: start: 20000502
  12. NOVANTRONE [Concomitant]
     Active Substance: MITOXANTRONE HYDROCHLORIDE
     Dosage: UNK
  13. KYTRIL [Concomitant]
     Active Substance: GRANISETRON HYDROCHLORIDE
     Dosage: UNK
  14. RITUXAN [Suspect]
     Active Substance: RITUXIMAB
     Dosage: 700 MG, UNK
     Route: 042
  15. ADRIAMYCIN [Concomitant]
     Active Substance: DOXORUBICIN HYDROCHLORIDE
     Dosage: 65 MG, UNK
     Route: 042
  16. BENADRYL [Concomitant]
     Active Substance: DIPHENHYDRAMINE HYDROCHLORIDE
     Dosage: 50 MG, UNK
     Route: 048
  17. VITAMIN B12 [Concomitant]
     Active Substance: CYANOCOBALAMIN
     Dosage: UNK
  18. EPOGEN [Concomitant]
     Active Substance: ERYTHROPOIETIN
     Dosage: (40000 UNIT NOT REPORTED)
     Route: 058
  19. LEVAQUIN [Concomitant]
     Active Substance: LEVOFLOXACIN
     Dosage: 500 MG, UNK
     Route: 065
  20. LEUKINE [Concomitant]
     Active Substance: SARGRAMOSTIM
     Dosage: UNK
  21. BACTRIM [Concomitant]
     Active Substance: SULFAMETHOXAZOLE\TRIMETHOPRIM
     Dosage: UNK
  22. COMPAZINE [Concomitant]
     Active Substance: PROCHLORPERAZINE MALEATE
     Dosage: UNK
  23. RITUXAN [Suspect]
     Active Substance: RITUXIMAB
     Dosage: 2000 MG, UNK
     Route: 042
     Dates: start: 20010312
  24. CYTOXAN [Concomitant]
     Active Substance: CYCLOPHOSPHAMIDE
     Dosage: 650 MG, UNK
     Route: 041
  25. CODEINE [Concomitant]
     Active Substance: CODEINE
     Dosage: UNK
  26. FLUDARABINE [Concomitant]
     Active Substance: FLUDARABINE PHOSPHATE
     Dosage: 50 MG, UNK
     Route: 041
  27. DEMEROL [Concomitant]
     Active Substance: MEPERIDINE HYDROCHLORIDE
     Dosage: 50 MG, UNK
     Route: 042

REACTIONS (27)
  - Cough [Unknown]
  - Vomiting [Unknown]
  - Insomnia [Unknown]
  - Muscular weakness [Unknown]
  - Balance disorder [Unknown]
  - Abdominal pain upper [Unknown]
  - Disease progression [Unknown]
  - Weight decreased [Unknown]
  - Memory impairment [Unknown]
  - Dyspnoea [Unknown]
  - Nausea [Unknown]
  - Vertigo [Unknown]
  - Palpitations [Unknown]
  - Epistaxis [Unknown]
  - Fatigue [Unknown]
  - Arthritis [Unknown]
  - Therapeutic product ineffective [Unknown]
  - Dysuria [Unknown]
  - Anaemia [Unknown]
  - Malaise [Unknown]
  - Thrombocytopenia [Unknown]
  - Pain in extremity [Unknown]
  - Oral pain [Unknown]
  - Chills [Unknown]
  - Hyperhidrosis [Unknown]
  - Rash [Unknown]
  - Decreased appetite [Unknown]
